FAERS Safety Report 24330270 (Version 2)
Quarter: 2024Q4

REPORT INFORMATION
  Report Type: Report from Study
  Country: AR (occurrence: AR)
  Receive Date: 20240918
  Receipt Date: 20241004
  Transmission Date: 20250114
  Serious: Yes (Other)
  Sender: TAKEDA
  Company Number: AR-TAKEDA-2024TUS086039

PATIENT
  Age: 12 Year
  Sex: Male
  Weight: 22.8 kg

DRUGS (1)
  1. IDURSULFASE [Suspect]
     Active Substance: IDURSULFASE
     Indication: Supplementation therapy
     Dosage: UNK UNK, 1/WEEK
     Route: 042
     Dates: start: 20170406

REACTIONS (4)
  - Seizure [Recovered/Resolved]
  - Vein collapse [Unknown]
  - Product dose omission issue [Recovered/Resolved]
  - Tonsillitis [Unknown]

NARRATIVE: CASE EVENT DATE: 20240820
